FAERS Safety Report 6331989-1 (Version None)
Quarter: 2009Q3

REPORT INFORMATION
  Report Type: 
  Country: None (occurrence: None)
  Receive Date: 20090828
  Receipt Date: 20090820
  Transmission Date: 20100115
  Serious: Yes (Hospitalization)
  Sender: FDA-Public Use
  Company Number: US-BIOGENIDEC-2009BI024781

PATIENT
  Age: 51 Year
  Sex: Female
  Weight: 104 kg

DRUGS (1)
  1. AVONEX [Suspect]
     Indication: MULTIPLE SCLEROSIS
     Route: 030
     Dates: start: 20090717

REACTIONS (4)
  - CELLULITIS [None]
  - DECREASED IMMUNE RESPONSIVENESS [None]
  - DERMATITIS ALLERGIC [None]
  - OEDEMA PERIPHERAL [None]
